FAERS Safety Report 5711959-4 (Version None)
Quarter: 2008Q2

REPORT INFORMATION
  Report Type: 
  Country: None (occurrence: None)
  Receive Date: 20080421
  Receipt Date: 20080411
  Transmission Date: 20081010
  Serious: Yes (Death, Hospitalization)
  Sender: FDA-Public Use
  Company Number: US-ABBOTT-08P-163-0446557-00

PATIENT
  Sex: Male
  Weight: 62.198 kg

DRUGS (17)
  1. ZEMPLAR [Suspect]
     Indication: HYPERPARATHYROIDISM SECONDARY
     Route: 048
     Dates: start: 20070501, end: 20080116
  2. VICODIN [Concomitant]
     Indication: PAIN
     Dosage: 7.5-750
     Dates: end: 20080308
  3. DIAZEPAM [Concomitant]
     Indication: DRUG USE FOR UNKNOWN INDICATION
     Route: 048
     Dates: end: 20080308
  4. SERETIDE [Concomitant]
     Indication: DRUG USE FOR UNKNOWN INDICATION
  5. SALBUTAMOL SULFATE [Concomitant]
     Indication: DRUG USE FOR UNKNOWN INDICATION
  6. LEVALBUTEROL HCL [Concomitant]
     Indication: RESPIRATORY DISORDER
     Route: 048
     Dates: end: 20080308
  7. METOLAZONE [Concomitant]
     Indication: FLUID RETENTION
     Route: 048
     Dates: end: 20080308
  8. COMBIVENT [Concomitant]
     Indication: RESPIRATORY DISORDER
     Route: 055
     Dates: end: 20080308
  9. FORMOTEROL FUMARATE [Concomitant]
     Indication: RESPIRATORY DISORDER
     Route: 055
     Dates: end: 20080308
  10. MOMETASOME [Concomitant]
     Indication: RESPIRATORY DISORDER
     Route: 055
     Dates: end: 20080308
  11. FENTENYL [Concomitant]
     Indication: PAIN
     Route: 062
     Dates: end: 20080308
  12. MORPHINE [Concomitant]
     Indication: PAIN
     Dates: end: 20080308
  13. SALBUTAMOL SULFATE [Concomitant]
     Indication: RESPIRATORY DISORDER
     Route: 055
     Dates: end: 20080308
  14. SODIUM BICARB [Concomitant]
     Indication: DRUG USE FOR UNKNOWN INDICATION
     Dates: end: 20080308
  15. FEROSIMIDE [Concomitant]
     Indication: FLUID RETENTION
     Dates: end: 20080308
  16. POTASSIUM CHLORIDE [Concomitant]
     Indication: DRUG USE FOR UNKNOWN INDICATION
     Dates: end: 20080308
  17. GLYCERYL TRINITRATE [Concomitant]
     Indication: CHEST PAIN
     Dates: end: 20080308

REACTIONS (4)
  - CARDIAC FAILURE [None]
  - LUNG DISORDER [None]
  - RENAL DISORDER [None]
  - RESPIRATORY FAILURE [None]
